FAERS Safety Report 6521185-7 (Version None)
Quarter: 2009Q4

REPORT INFORMATION
  Report Type: 
  Country: None (occurrence: None)
  Receive Date: 20091229
  Receipt Date: 20091222
  Transmission Date: 20100525
  Serious: Yes (Other)
  Sender: FDA-Public Use
  Company Number: JP-BAYER-200914932BYL

PATIENT
  Age: 80 Year
  Sex: Female

DRUGS (4)
  1. ADALAT [Suspect]
     Indication: HYPERTENSION
     Route: 048
  2. ENALAPRIL [Concomitant]
     Indication: HYPERTENSION
     Route: 048
  3. TRICHLORMETHIAZIDE [Concomitant]
     Indication: HYPERTENSION
     Route: 048
  4. ANTIBIOTIC PREPARATIONS [Concomitant]
     Indication: INFECTIVE SPONDYLITIS
     Route: 065

REACTIONS (1)
  - ALTERED STATE OF CONSCIOUSNESS [None]
